FAERS Safety Report 6528024-9 (Version None)
Quarter: 2010Q1

REPORT INFORMATION
  Report Type: 
  Country: None (occurrence: None)
  Receive Date: 20100106
  Receipt Date: 20091231
  Transmission Date: 20100710
  Serious: Yes (Hospitalization)
  Sender: FDA-Public Use
  Company Number: US-BRISTOL-MYERS SQUIBB COMPANY-14908651

PATIENT
  Age: 79 Year
  Sex: Female
  Weight: 74 kg

DRUGS (15)
  1. DASATINIB [Suspect]
     Indication: BREAST CANCER
     Dosage: LAST DOSE ON 17DEC09
     Dates: start: 20091201, end: 20091217
  2. LETROZOLE [Suspect]
     Indication: BREAST CANCER
     Dosage: LAST DOSE ON 17DEC09
     Dates: start: 20091201, end: 20091217
  3. TENORMIN [Concomitant]
     Indication: HYPERTENSION
     Route: 048
  4. NOVOLOG [Concomitant]
     Indication: DIABETES MELLITUS
     Dosage: FLEXPEN
  5. LANTUS [Concomitant]
     Indication: DIABETES MELLITUS
     Route: 058
  6. DIGOXIN [Concomitant]
     Indication: CARDIAC DISORDER
     Route: 048
  7. SYNTHROID [Concomitant]
     Indication: HYPOTHYROIDISM
     Route: 048
  8. ASPIRIN [Concomitant]
     Indication: PROPHYLAXIS
     Route: 048
  9. PLAVIX [Concomitant]
     Indication: THROMBOSIS PROPHYLAXIS
     Route: 048
  10. FEXOFENADINE HCL [Concomitant]
     Route: 048
  11. LIPITOR [Concomitant]
     Indication: HYPERCHOLESTEROLAEMIA
     Route: 048
  12. ZETIA [Concomitant]
     Indication: HYPERCHOLESTEROLAEMIA
     Route: 048
  13. METFORMIN HYDROCHLORIDE [Concomitant]
     Indication: DIABETES MELLITUS
     Route: 048
  14. GEMFIBROZIL [Concomitant]
     Indication: HYPERLIPIDAEMIA
     Route: 048
  15. ENABLEX [Concomitant]
     Indication: HYPERTONIC BLADDER
     Route: 048

REACTIONS (3)
  - ACUTE RESPIRATORY FAILURE [None]
  - ANGIOEDEMA [None]
  - RENAL FAILURE ACUTE [None]
